FAERS Safety Report 5373698-1 (Version None)
Quarter: 2007Q2

REPORT INFORMATION
  Report Type: 
  Country: None (occurrence: None)
  Receive Date: 20070615
  Receipt Date: 20070205
  Transmission Date: 20071010
  Serious: Yes (Other)
  Sender: FDA-Public Use
  Company Number: 200616511US

PATIENT
  Age: 39 Year
  Sex: Female

DRUGS (11)
  1. LANTUS [Suspect]
     Indication: DIABETES MELLITUS NON-INSULIN-DEPENDENT
     Dosage: 60 U
  2. OPTICLIK [Suspect]
  3. INSULIN (HUMALOG /00030501/) [Concomitant]
  4. DIGOXIN [Concomitant]
  5. TOPROL-XL [Concomitant]
  6. SULFAMETHOXAZOLE, TRIMETHOPRIM (BACTRIM DS) [Concomitant]
  7. CARAFATE [Concomitant]
  8. GI COCKTAIL [Concomitant]
  9. PREVACID [Concomitant]
  10. METOCLOPRAMIDE (REGLAN /00041901/) [Concomitant]
  11. AMBIEN [Concomitant]

REACTIONS (2)
  - HYPERGLYCAEMIA [None]
  - INFECTIOUS MONONUCLEOSIS [None]
